FAERS Safety Report 23720582 (Version 3)
Quarter: 2024Q2

REPORT INFORMATION
  Report Type: Spontaneous
  Country: JP (occurrence: JP)
  Receive Date: 20240408
  Receipt Date: 20240603
  Transmission Date: 20240715
  Serious: Yes (Hospitalization)
  Sender: FDA-Public Use
  Company Number: JP-KISSEI-TV20230679_P_1

PATIENT
  Age: 73 Year
  Sex: Male
  Weight: 54.5 kg

DRUGS (10)
  1. TAVNEOS [Suspect]
     Active Substance: AVACOPAN
     Indication: Microscopic polyangiitis
     Dosage: 30 MILLIGRAM, Q12H
     Route: 048
     Dates: start: 20230907, end: 20231114
  2. AMLODIPINE [Concomitant]
     Active Substance: AMLODIPINE BESYLATE
     Indication: Hypertension
     Dosage: 2.5 MILLIGRAM, QD
     Route: 048
  3. ATORVASTATIN [Concomitant]
     Active Substance: ATORVASTATIN
     Indication: Dyslipidaemia
     Dosage: 10 MILLIGRAM, QD
     Route: 048
     Dates: start: 20231114
  4. ALFACALCIDOL [Concomitant]
     Active Substance: ALFACALCIDOL
     Indication: Microscopic polyangiitis
     Dosage: 0.25 MICROGRAM, QD
     Route: 048
     Dates: start: 20230817
  5. FAMOTIDINE [Concomitant]
     Active Substance: FAMOTIDINE
     Indication: Microscopic polyangiitis
     Dosage: 10 MILLIGRAM, QD
     Route: 048
     Dates: start: 20230817
  6. AMITIZA [Concomitant]
     Active Substance: LUBIPROSTONE
     Indication: Constipation
     Dosage: AS REQUIRED
     Route: 048
     Dates: start: 20230814
  7. ELOBIXIBAT [Concomitant]
     Active Substance: ELOBIXIBAT
     Indication: Constipation
     Dosage: AS REQUIRED
     Route: 048
     Dates: start: 20230822
  8. SULFAMETHOXAZOLE\TRIMETHOPRIM [Concomitant]
     Active Substance: SULFAMETHOXAZOLE\TRIMETHOPRIM
     Indication: Microscopic polyangiitis
     Dosage: FREQUENCY: 0.33 WEEKS
     Route: 048
     Dates: start: 20230825
  9. PREDNISOLONE [Concomitant]
     Active Substance: PREDNISOLONE
     Indication: Microscopic polyangiitis
     Dosage: 25 MILLIGRAM, QD
     Route: 048
     Dates: start: 20230820
  10. TAMSULOSIN HYDROCHLORIDE [Concomitant]
     Active Substance: TAMSULOSIN HYDROCHLORIDE
     Indication: Benign prostatic hyperplasia
     Dosage: 0.2 MILLIGRAM, QD
     Route: 048

REACTIONS (2)
  - Liver disorder [Recovered/Resolved]
  - Pruritus [Recovered/Resolved]

NARRATIVE: CASE EVENT DATE: 20231114
